FAERS Safety Report 20680049 (Version 1)
Quarter: 2022Q2

REPORT INFORMATION
  Report Type: Spontaneous
  Country: JP (occurrence: JP)
  Receive Date: 20220406
  Receipt Date: 20220406
  Transmission Date: 20220721
  Serious: Yes (Other)
  Sender: FDA-Public Use
  Company Number: JP-PFIZER INC-202200391270

PATIENT
  Age: 79 Year
  Sex: Male

DRUGS (11)
  1. PREGABALIN [Suspect]
     Active Substance: PREGABALIN
     Dosage: 75 MG, 1X/DAY
     Route: 048
     Dates: start: 20220217, end: 20220226
  2. LOXOPROFEN SODIUM [Suspect]
     Active Substance: LOXOPROFEN SODIUM
     Dosage: 60 MG, 2X/DAY
     Route: 048
     Dates: start: 20220217, end: 20220313
  3. REBAMIPIDE [Suspect]
     Active Substance: REBAMIPIDE
     Dosage: 100 MG, 2X/DAY
     Route: 048
     Dates: start: 20220217, end: 20220313
  4. TELTHIA COMBINATION BP DSEP [Concomitant]
     Dosage: 1 DF, 1X/DAY
     Route: 048
     Dates: start: 20201222
  5. EPLERENONE [Concomitant]
     Active Substance: EPLERENONE
     Dosage: 50 MG, 1X/DAY
     Route: 048
     Dates: start: 20201222
  6. ASPIRIN [Concomitant]
     Active Substance: ASPIRIN
     Dosage: 100 MG, 1X/DAY
     Route: 048
     Dates: start: 20201222
  7. FEBUXOSTAT [Concomitant]
     Active Substance: FEBUXOSTAT
     Dosage: 20 MG, 1X/DAY
     Route: 048
     Dates: start: 20201222
  8. VONOPRAZAN FUMARATE [Concomitant]
     Active Substance: VONOPRAZAN FUMARATE
     Dosage: 10 MG, 1X/DAY
     Route: 048
     Dates: start: 20201222
  9. CADUET [Concomitant]
     Active Substance: AMLODIPINE BESYLATE\ATORVASTATIN CALCIUM
     Dosage: 1 DF, 1X/DAY
     Route: 048
     Dates: start: 20211119
  10. CELECOXIB [Concomitant]
     Active Substance: CELECOXIB
     Dosage: 100 MG, 2X/DAY
     Route: 048
     Dates: start: 20211119, end: 20220216
  11. BILASTINE [Concomitant]
     Active Substance: BILASTINE
     Dosage: 20 MG, 1X/DAY
     Route: 048
     Dates: start: 20201222

REACTIONS (2)
  - Visual impairment [Recovered/Resolved]
  - Visual field defect [Recovered/Resolved]

NARRATIVE: CASE EVENT DATE: 20220201
